FAERS Safety Report 19164400 (Version 5)
Quarter: 2022Q3

REPORT INFORMATION
  Report Type: Spontaneous
  Country: US (occurrence: US)
  Receive Date: 20210421
  Receipt Date: 20220930
  Transmission Date: 20221027
  Serious: No
  Sender: FDA-Public Use
  Company Number: US-PFIZER INC-2021253236

PATIENT
  Age: 67 Year
  Sex: Female
  Weight: 71.67 kg

DRUGS (2)
  1. XELJANZ XR [Suspect]
     Active Substance: TOFACITINIB CITRATE
     Indication: Rheumatoid arthritis
     Dosage: 11 MG, 1X/DAY
     Route: 048
     Dates: start: 202011
  2. XELJANZ XR [Suspect]
     Active Substance: TOFACITINIB CITRATE
     Dosage: 11 MG, 1X/DAY
     Route: 048
     Dates: start: 2020

REACTIONS (9)
  - Arthralgia [Unknown]
  - Pain in extremity [Unknown]
  - Eye pain [Unknown]
  - Condition aggravated [Unknown]
  - Sensory disturbance [Unknown]
  - Pain [Unknown]
  - Rash [Unknown]
  - Skin texture abnormal [Unknown]
  - Dermatitis [Unknown]

NARRATIVE: CASE EVENT DATE: 20211205
